FAERS Safety Report 8456531-0 (Version None)
Quarter: 2012Q2

REPORT INFORMATION
  Report Type: 
  Country: None (occurrence: None)
  Receive Date: 20120621
  Receipt Date: 20120615
  Transmission Date: 20120825
  Serious: Yes (Other)
  Sender: FDA-Public Use
  Company Number: BR-BAYER-2012-059342

PATIENT
  Age: 45 Year
  Sex: Female
  Weight: 90 kg

DRUGS (6)
  1. AVELOX [Suspect]
     Indication: BRONCHITIS
  2. AVELOX [Suspect]
     Indication: PHARYNGEAL INFLAMMATION
     Dosage: 1 DF, QD
     Route: 048
     Dates: start: 20120608, end: 20120612
  3. FORMOTEROL FUMARATE [Concomitant]
     Indication: BRONCHITIS
  4. PREDNISOLONE [Concomitant]
     Indication: BRONCHITIS
  5. FORMOTEROL FUMARATE [Concomitant]
     Indication: PHARYNGEAL INFLAMMATION
     Dosage: UNK
     Route: 045
     Dates: start: 20120609, end: 20120611
  6. PREDNISOLONE [Concomitant]
     Indication: PHARYNGEAL INFLAMMATION
     Dosage: 1 DF, QD
     Route: 048
     Dates: start: 20120609, end: 20120611

REACTIONS (9)
  - EAR CONGESTION [None]
  - TACHYCARDIA [None]
  - ASTHENIA [None]
  - HYPOGLYCAEMIA [None]
  - DIARRHOEA [None]
  - DIZZINESS [None]
  - DRY MOUTH [None]
  - TREMOR [None]
  - DYSPNOEA [None]
